FAERS Safety Report 10877879 (Version 1)
Quarter: 2015Q1

REPORT INFORMATION
  Report Type: Spontaneous
  Country: ES (occurrence: ES)
  Receive Date: 20150302
  Receipt Date: 20150302
  Transmission Date: 20150721
  Serious: Yes (Other)
  Sender: FDA-Public Use
  Company Number: ES-MYLANLABS-2015M1006418

PATIENT

DRUGS (2)
  1. MORPHINE [Suspect]
     Active Substance: MORPHINE
     Indication: POST LAMINECTOMY SYNDROME
     Dosage: BOLUS DOSE OF 1.4MG OVER 2HRS FOLLOWED BY MAINTENANCE AT 1MG/DAY
     Route: 037
  2. MORPHINE [Suspect]
     Active Substance: MORPHINE
     Dosage: 1 MG, QD
     Route: 037

REACTIONS (6)
  - Nausea [Recovered/Resolved]
  - Vertigo [Recovered/Resolved]
  - Respiratory depression [Recovered/Resolved]
  - Neurosensory hypoacusis [Recovered/Resolved]
  - Toxicity to various agents [Recovered/Resolved]
  - Vomiting [Recovered/Resolved]
